FAERS Safety Report 9472275 (Version 1)
Quarter: 2013Q3

REPORT INFORMATION
  Report Type: Spontaneous
  Country: DE (occurrence: DE)
  Receive Date: 20130823
  Receipt Date: 20130823
  Transmission Date: 20140515
  Serious: Yes (Other)
  Sender: FDA-Public Use
  Company Number: DE-ROCHE-1264918

PATIENT
  Sex: Female

DRUGS (3)
  1. ROACTEMRA [Suspect]
     Indication: OVERLAP SYNDROME
     Route: 042
     Dates: start: 20130708
  2. MABTHERA [Suspect]
     Indication: OVERLAP SYNDROME
     Route: 065
  3. LEFLUNOMIDE [Concomitant]

REACTIONS (3)
  - Nausea [Unknown]
  - Abdominal pain [Unknown]
  - Respiratory disorder [Unknown]
